FAERS Safety Report 10356817 (Version 1)
Quarter: 2014Q3

REPORT INFORMATION
  Report Type: Report from Study
  Country: US (occurrence: US)
  Receive Date: 20140801
  Receipt Date: 20140801
  Transmission Date: 20150326
  Serious: Yes (Other)
  Sender: FDA-Public Use
  Company Number: PHEH2014US015131

PATIENT
  Sex: Female

DRUGS (16)
  1. GILENYA [Suspect]
     Active Substance: FINGOLIMOD HYDROCHLORIDE
     Indication: MULTIPLE SCLEROSIS
     Dosage: 0.5 MG, QD
     Route: 048
     Dates: start: 201109
  2. AVONEX [Concomitant]
     Active Substance: INTERFERON BETA-1A
  3. GELNIQUE [Concomitant]
     Active Substance: OXYBUTYNIN\OXYBUTYNIN CHLORIDE
  4. VITAMIN D3 [Concomitant]
     Active Substance: CHOLECALCIFEROL
  5. REBIF [Concomitant]
     Active Substance: INTERFERON BETA-1A
  6. PROVIGIL//CHORIONIC GONADOTROPHIN [Concomitant]
  7. VESICARE [Concomitant]
     Active Substance: SOLIFENACIN SUCCINATE
  8. MACRODANTIN [Concomitant]
     Active Substance: NITROFURANTOIN
  9. LOSARTAN [Concomitant]
     Active Substance: LOSARTAN
  10. CELEXA [Concomitant]
     Active Substance: CITALOPRAM HYDROBROMIDE
  11. ATENOLOL. [Concomitant]
     Active Substance: ATENOLOL
  12. LANSOPRAZOLE. [Concomitant]
     Active Substance: LANSOPRAZOLE
  13. PREVACID [Concomitant]
     Active Substance: LANSOPRAZOLE
  14. AMPYRA [Concomitant]
     Active Substance: DALFAMPRIDINE
  15. NOROXIN [Concomitant]
     Active Substance: NORFLOXACIN
  16. VICODIN [Concomitant]
     Active Substance: ACETAMINOPHEN\HYDROCODONE BITARTRATE

REACTIONS (19)
  - Dysstasia [Unknown]
  - Anaemia [Unknown]
  - Joint dislocation [Unknown]
  - Hypertension [Unknown]
  - Nuclear magnetic resonance imaging abnormal [Unknown]
  - Depression [Unknown]
  - CSF test abnormal [Unknown]
  - Neurogenic bladder [Unknown]
  - Decreased vibratory sense [Unknown]
  - Limb discomfort [Unknown]
  - Vascular headache [Unknown]
  - Muscular weakness [Unknown]
  - Multiple sclerosis relapse [Unknown]
  - Sensory disturbance [Unknown]
  - Foot fracture [Unknown]
  - Peptic ulcer [Unknown]
  - Paraparesis [Unknown]
  - Cerebellar syndrome [Unknown]
  - Extensor plantar response [Unknown]
